FAERS Safety Report 23531645 (Version 3)
Quarter: 2024Q3

REPORT INFORMATION
  Report Type: Report from Study
  Country: CA (occurrence: CA)
  Receive Date: 20240216
  Receipt Date: 20240918
  Transmission Date: 20241017
  Serious: Yes (Other)
  Sender: JOHNSON AND JOHNSON
  Company Number: CA-JNJFOC-20231283563

PATIENT
  Age: 59 Year
  Sex: Male
  Weight: 96 kg

DRUGS (6)
  1. REMICADE [Suspect]
     Active Substance: INFLIXIMAB
     Indication: Crohn^s disease
     Dosage: 9 VIALS OF REMICADE SO 900MG.  ADMINISTERED ON 08-FEB-2024.
     Route: 041
     Dates: start: 20151021
  2. REMICADE [Suspect]
     Active Substance: INFLIXIMAB
     Dosage: PHARMACY ONLY PROVIDED 9 VIALS OF REMICADE SO 900MG (10MG/KG DOSE)
     Route: 041
     Dates: start: 20240208
  3. METHOTREXATE [Concomitant]
     Active Substance: METHOTREXATE
     Dosage: 3 TIMES PER WEEK
  4. FOLIC ACID [Concomitant]
     Active Substance: FOLIC ACID
     Dosage: 3 TIMES PER WEEK
  5. PINAVERIUM BROMIDE [Concomitant]
     Active Substance: PINAVERIUM BROMIDE
     Dosage: BID
  6. ROSUVASTATIN [Concomitant]
     Active Substance: ROSUVASTATIN\ROSUVASTATIN CALCIUM
     Dosage: DAILY

REACTIONS (6)
  - Abscess [Recovered/Resolved]
  - Weight increased [Recovered/Resolved]
  - Abscess drainage [Recovered/Resolved]
  - COVID-19 [Recovered/Resolved]
  - Fatigue [Not Recovered/Not Resolved]
  - Weight decreased [Recovered/Resolved]

NARRATIVE: CASE EVENT DATE: 20240131
